FAERS Safety Report 5830530-7 (Version None)
Quarter: 2008Q3

REPORT INFORMATION
  Report Type: 
  Country: None (occurrence: None)
  Receive Date: 20080801
  Receipt Date: 20070628
  Transmission Date: 20090109
  Serious: No
  Sender: FDA-Public Use
  Company Number: US-BRISTOL-MYERS SQUIBB COMPANY-13829544

PATIENT
  Sex: Male
  Weight: 77 kg

DRUGS (4)
  1. WARFARIN SODIUM [Suspect]
     Route: 048
  2. HEPARIN [Concomitant]
  3. COZAAR [Concomitant]
  4. TESTOSTERONE [Concomitant]

REACTIONS (3)
  - ALOPECIA [None]
  - BLUE TOE SYNDROME [None]
  - RASH [None]
